FAERS Safety Report 23210477 (Version 1)
Quarter: 2023Q4

REPORT INFORMATION
  Report Type: Spontaneous
  Country: NL (occurrence: NL)
  Receive Date: 20231121
  Receipt Date: 20231121
  Transmission Date: 20240110
  Serious: Yes (Hospitalization)
  Sender: FDA-Public Use
  Company Number: NL-002147023-NVSC2023NL244541

PATIENT

DRUGS (1)
  1. ALPELISIB [Suspect]
     Active Substance: ALPELISIB
     Indication: Breast cancer
     Dosage: UNK
     Route: 065

REACTIONS (1)
  - Renal failure [Unknown]
